FAERS Safety Report 8862368 (Version 2)
Quarter: 2013Q1

REPORT INFORMATION
  Report Type: Spontaneous
  Country: US (occurrence: US)
  Receive Date: 20121026
  Receipt Date: 20130102
  Transmission Date: 20140127
  Serious: Yes (Other)
  Sender: FDA-Public Use
  Company Number: US-UCBSA-069575

PATIENT
  Age: 62 Year
  Sex: Female
  Weight: 53.07 kg

DRUGS (5)
  1. CIMZIA [Suspect]
     Indication: CROHN^S DISEASE
     Route: 058
     Dates: start: 20080826, end: 20120522
  2. ALLEGRA [Concomitant]
     Indication: RHINITIS ALLERGIC
     Route: 048
  3. LIDODERM [Concomitant]
     Dosage: DRUG FORM : 5% PATCH
  4. METOPROLOL [Concomitant]
     Indication: HYPERTENSION
     Route: 048
  5. TRAMADOL [Concomitant]
     Indication: PAIN
     Route: 048

REACTIONS (2)
  - Herpes zoster [Recovered/Resolved]
  - Post herpetic neuralgia [Unknown]
